FAERS Safety Report 24895640 (Version 1)
Quarter: 2025Q1

REPORT INFORMATION
  Report Type: Spontaneous
  Country: US (occurrence: US)
  Receive Date: 20250128
  Receipt Date: 20250128
  Transmission Date: 20250408
  Serious: Yes (Other)
  Sender: DR REDDYS
  Company Number: US-DRL-USA-USA/2025/01/001273

PATIENT
  Age: 4 Year
  Sex: Female

DRUGS (7)
  1. VIGABATRIN [Suspect]
     Active Substance: VIGABATRIN
     Indication: Lennox-Gastaut syndrome
  2. VALPROATE [Suspect]
     Active Substance: VALPROIC ACID
     Indication: Lennox-Gastaut syndrome
  3. LACOSAMIDE [Suspect]
     Active Substance: LACOSAMIDE
     Indication: Lennox-Gastaut syndrome
  4. CANNABIDIOL [Concomitant]
     Active Substance: CANNABIDIOL
     Indication: Lennox-Gastaut syndrome
  5. CLOBAZAM [Concomitant]
     Active Substance: CLOBAZAM
     Indication: Lennox-Gastaut syndrome
  6. PERAMPANEL [Concomitant]
     Active Substance: PERAMPANEL
     Indication: Lennox-Gastaut syndrome
  7. FELBAMATE [Concomitant]
     Active Substance: FELBAMATE
     Indication: Lennox-Gastaut syndrome

REACTIONS (3)
  - Thrombocytopenia [Unknown]
  - Drug ineffective [Unknown]
  - Cerebral disorder [Unknown]
